FAERS Safety Report 18368048 (Version 2)
Quarter: 2021Q1

REPORT INFORMATION
  Report Type: Spontaneous
  Country: US (occurrence: US)
  Receive Date: 20201009
  Receipt Date: 20210218
  Transmission Date: 20210419
  Serious: Yes (Other)
  Sender: FDA-Public Use
  Company Number: US-CELGENEUS-USA-20201000987

PATIENT
  Age: 25 Year
  Sex: Female

DRUGS (12)
  1. THALOMID [Suspect]
     Active Substance: THALIDOMIDE
     Indication: OFF LABEL USE
     Dosage: 300 MILLIGRAM
     Route: 048
     Dates: start: 201310
  2. THALOMID [Suspect]
     Active Substance: THALIDOMIDE
     Dosage: 300 MILLIGRAM
     Route: 048
     Dates: start: 201804
  3. THALOMID [Suspect]
     Active Substance: THALIDOMIDE
     Indication: INFLAMMATION
     Dosage: 200 MILLIGRAM
     Route: 048
     Dates: start: 201309
  4. THALOMID [Suspect]
     Active Substance: THALIDOMIDE
     Dosage: 100 MILLIGRAM
     Route: 048
     Dates: start: 202010
  5. THALOMID [Suspect]
     Active Substance: THALIDOMIDE
     Dosage: 200 MILLIGRAM
     Route: 048
     Dates: start: 202101
  6. THALOMID [Suspect]
     Active Substance: THALIDOMIDE
     Dosage: 300 MILLIGRAM
     Route: 048
     Dates: start: 201704
  7. THALOMID [Suspect]
     Active Substance: THALIDOMIDE
     Dosage: 100 MILLIGRAM
     Route: 048
     Dates: start: 201705
  8. THALOMID [Suspect]
     Active Substance: THALIDOMIDE
     Dosage: 350 MILLIGRAM
     Route: 048
     Dates: start: 201812
  9. THALOMID [Suspect]
     Active Substance: THALIDOMIDE
     Dosage: 100 MILLIGRAM
     Route: 048
     Dates: start: 201604
  10. THALOMID [Suspect]
     Active Substance: THALIDOMIDE
     Dosage: 150 MILLIGRAM
     Route: 048
     Dates: start: 201706
  11. THALOMID [Suspect]
     Active Substance: THALIDOMIDE
     Dosage: 200 MILLIGRAM
     Route: 048
     Dates: start: 202007
  12. THALOMID [Suspect]
     Active Substance: THALIDOMIDE
     Dosage: 300 MILLIGRAM
     Route: 048
     Dates: start: 201906

REACTIONS (1)
  - Human chorionic gonadotropin increased [Unknown]

NARRATIVE: CASE EVENT DATE: 20200929
